FAERS Safety Report 10057962 (Version 1)
Quarter: 2014Q2

REPORT INFORMATION
  Report Type: Spontaneous
  Country: DE (occurrence: DE)
  Receive Date: 20140404
  Receipt Date: 20140404
  Transmission Date: 20141212
  Serious: Yes (Other)
  Sender: FDA-Public Use
  Company Number: DE-ELI_LILLY_AND_COMPANY-DE201403010549

PATIENT
  Age: 24 Year
  Sex: Male
  Weight: 80 kg

DRUGS (2)
  1. ZYPREXA [Suspect]
     Indication: SCHIZOPHRENIA
     Dosage: 15 MG, QD
     Route: 048
     Dates: start: 201306, end: 20130724
  2. TRUXAL [Concomitant]
     Indication: SCHIZOPHRENIA
     Dosage: 15 MG, QD
     Dates: start: 201306

REACTIONS (3)
  - Agranulocytosis [Recovered/Resolved]
  - Acute tonsillitis [Recovered/Resolved]
  - Sepsis [Recovered/Resolved]
